FAERS Safety Report 12695589 (Version 1)
Quarter: 2016Q3

REPORT INFORMATION
  Report Type: Spontaneous
  Country: US (occurrence: US)
  Receive Date: 20160829
  Receipt Date: 20160829
  Transmission Date: 20161109
  Serious: No
  Sender: FDA-Public Use
  Company Number: US-KALEO, INC-2015SA180481

PATIENT
  Age: 17 Year
  Sex: Female
  Weight: 62.99 kg

DRUGS (5)
  1. FLUOXETINE HCL [Concomitant]
     Active Substance: FLUOXETINE HYDROCHLORIDE
     Indication: PRODUCT USED FOR UNKNOWN INDICATION
  2. AUVI-Q [Suspect]
     Active Substance: EPINEPHRINE
     Indication: ANAPHYLACTIC REACTION
     Dosage: ONCE IM OR SC
     Dates: start: 20151019, end: 20151019
  3. DESOGESTREL-ETHINYL ESTRADIOL [Concomitant]
     Active Substance: DESOGESTREL\ETHINYL ESTRADIOL
     Indication: MENSTRUAL DISORDER
  4. FEXOFENADINE-PSEUDOEPHEDRINE [Concomitant]
     Indication: PRODUCT USED FOR UNKNOWN INDICATION
  5. TRAZODONE HYDROCHLORIDE. [Concomitant]
     Active Substance: TRAZODONE HYDROCHLORIDE
     Indication: PRODUCT USED FOR UNKNOWN INDICATION

REACTIONS (1)
  - Drug ineffective [Recovered/Resolved]

NARRATIVE: CASE EVENT DATE: 20151019
